FAERS Safety Report 15484837 (Version 1)
Quarter: 2018Q4

REPORT INFORMATION
  Report Type: Spontaneous
  Country: US (occurrence: US)
  Receive Date: 20181010
  Receipt Date: 20181010
  Transmission Date: 20190205
  Serious: No
  Sender: FDA-Public Use
  Company Number: US-ROCHE-2089352

PATIENT
  Sex: Male

DRUGS (1)
  1. ZELBORAF [Suspect]
     Active Substance: VEMURAFENIB
     Indication: MALIGNANT MELANOMA STAGE IV
     Route: 065
     Dates: start: 20180101

REACTIONS (6)
  - Product administration error [Unknown]
  - Dysphagia [Not Recovered/Not Resolved]
  - Choking [Recovered/Resolved]
  - Oesophageal motility disorder [Not Recovered/Not Resolved]
  - Wrong technique in product usage process [Unknown]
  - Abdominal distension [Unknown]
